FAERS Safety Report 5142936-2 (Version None)
Quarter: 2006Q4

REPORT INFORMATION
  Report Type: 
  Country: None (occurrence: None)
  Receive Date: 20061030
  Receipt Date: 20061019
  Transmission Date: 20070319
  Serious: Yes (Hospitalization)
  Sender: FDA-Public Use
  Company Number: L06-NOR-04323-01

PATIENT
  Age: 74 Year
  Sex: Female

DRUGS (6)
  1. CITALOPRAM HYDROBROMIDE [Suspect]
     Dosage: TABLET
  2. ZYPREXA [Suspect]
     Indication: DEPRESSION
  3. ZYPREXA [Suspect]
     Indication: SOMATIC DELUSION
  4. MIANSERIN [Suspect]
  5. FONTEX (FLUOXETINE HYDROCHLORIDE) [Suspect]
     Indication: DEPRESSION
  6. FONTEX (FLUOXETINE HYDROCHLORIDE) [Suspect]
     Indication: SOMATIC DELUSION

REACTIONS (16)
  - CARDIAC FAILURE [None]
  - COMA [None]
  - CONVULSION [None]
  - DILATATION VENTRICULAR [None]
  - DRUG INTERACTION [None]
  - DRUG TOXICITY [None]
  - HEPATIC ENZYME INCREASED [None]
  - HYPERTENSION [None]
  - HYPOTENSION [None]
  - PNEUMONIA [None]
  - PULMONARY EMBOLISM [None]
  - PULMONARY HYPERTENSION [None]
  - SELF-MEDICATION [None]
  - SEROTONIN SYNDROME [None]
  - SUICIDE ATTEMPT [None]
  - TROPONIN T INCREASED [None]
